FAERS Safety Report 17813625 (Version 1)
Quarter: 2020Q2

REPORT INFORMATION
  Report Type: Report from Study
  Country: US (occurrence: US)
  Receive Date: 20200521
  Receipt Date: 20200521
  Transmission Date: 20200714
  Serious: Yes (Hospitalization, Disabling, Other)
  Sender: FDA-Public Use
  Company Number: NVSC2020US138573

PATIENT
  Age: 63 Year
  Sex: Male
  Weight: 85.81 kg

DRUGS (2)
  1. LUCENTIS [Suspect]
     Active Substance: RANIBIZUMAB
     Indication: DIABETIC RETINOPATHY
     Dosage: 0.3 MG EVERY FOUR TO SIX WEEKS FOR 28 DAYS
     Route: 031
  2. LISINOPRIL. [Suspect]
     Active Substance: LISINOPRIL
     Indication: HYPERTENSION
     Route: 065

REACTIONS (11)
  - Dehydration [Recovered/Resolved with Sequelae]
  - Diabetic ketoacidosis [Recovered/Resolved]
  - Cataract [Recovered/Resolved]
  - Blindness [Not Recovered/Not Resolved]
  - Loss of consciousness [Recovered/Resolved]
  - Renal failure [Not Recovered/Not Resolved]
  - Pneumonia [Recovered/Resolved]
  - Skin laceration [Recovered/Resolved]
  - Fall [Unknown]
  - Blood glucose increased [Recovered/Resolved with Sequelae]
  - Cerebrovascular accident [Recovered/Resolved]

NARRATIVE: CASE EVENT DATE: 20181031
